FAERS Safety Report 9612303 (Version 2)
Quarter: 2013Q4

REPORT INFORMATION
  Report Type: Spontaneous
  Country: AU (occurrence: AU)
  Receive Date: 20131010
  Receipt Date: 20131010
  Transmission Date: 20140711
  Serious: Yes (Hospitalization, Other)
  Sender: FDA-Public Use
  Company Number: AU-SA-A01200501265

PATIENT
  Age: 29 Year
  Sex: Female

DRUGS (10)
  1. STILNOX [Suspect]
     Indication: CONVULSION
     Route: 048
  2. SODIUM VALPROATE [Interacting]
     Indication: CONVULSION
     Route: 048
     Dates: end: 20030213
  3. QUETIAPINE [Interacting]
     Indication: PRODUCT USED FOR UNKNOWN INDICATION
     Route: 048
     Dates: end: 20030213
  4. VENLAFAXINE [Interacting]
     Indication: PRODUCT USED FOR UNKNOWN INDICATION
     Route: 048
     Dates: end: 20030213
  5. PANADOL [Concomitant]
     Indication: PRODUCT USED FOR UNKNOWN INDICATION
     Route: 065
  6. SANDOMIGRAN [Concomitant]
     Indication: PRODUCT USED FOR UNKNOWN INDICATION
     Route: 065
  7. MERSYNDOL [Concomitant]
     Indication: PRODUCT USED FOR UNKNOWN INDICATION
     Route: 065
  8. DIAZEPAM [Concomitant]
     Indication: PRODUCT USED FOR UNKNOWN INDICATION
     Route: 065
  9. PHENERGAN [Concomitant]
     Indication: PRODUCT USED FOR UNKNOWN INDICATION
     Route: 065
  10. VENTOLINE [Concomitant]
     Indication: PRODUCT USED FOR UNKNOWN INDICATION
     Route: 065

REACTIONS (10)
  - Neuroleptic malignant syndrome [Recovered/Resolved]
  - Drug interaction [Unknown]
  - Rhabdomyolysis [Unknown]
  - Convulsion [Unknown]
  - Depressed level of consciousness [Unknown]
  - Acidosis [Unknown]
  - Blood creatine phosphokinase increased [Unknown]
  - Hyperkalaemia [Unknown]
  - Pyrexia [Unknown]
  - Somnolence [Unknown]
